FAERS Safety Report 14666343 (Version 1)
Quarter: 2018Q1

REPORT INFORMATION
  Report Type: Spontaneous
  Country: US (occurrence: US)
  Receive Date: 20180320
  Receipt Date: 20180320
  Transmission Date: 20180509
  Serious: Yes (Other)
  Sender: FDA-Public Use
  Company Number: None

PATIENT
  Age: 43 Year
  Sex: Male
  Weight: 76.5 kg

DRUGS (1)
  1. TESTOSTERONE TOPICAL SOLUTION [Suspect]
     Active Substance: TESTOSTERONE
     Indication: BLOOD TESTOSTERONE DECREASED
     Dosage: QUANTITY:4 PUMPS;?
     Route: 061
     Dates: start: 20180320, end: 20180320

REACTIONS (4)
  - Product measured potency issue [None]
  - Drug effect decreased [None]
  - Product substitution issue [None]
  - Incorrect dose administered [None]

NARRATIVE: CASE EVENT DATE: 20180320
